FAERS Safety Report 8784448 (Version 1)
Quarter: 2012Q4

REPORT INFORMATION
  Report Type: 
  Country: US (occurrence: US)
  Receive Date: 20120910
  Receipt Date: 20120910
  Transmission Date: 20130627
  Serious: Yes (Other)
  Sender: FDA-Public Use
  Company Number: US-PFIZER INC-2012219296

PATIENT
  Age: 12 Year
  Sex: Male
  Weight: 61.22 kg

DRUGS (2)
  1. DIMETAPP [Suspect]
     Indication: OROPHARYNGEAL PAIN
     Dosage: UNK, three times a day
     Route: 048
     Dates: start: 20120902, end: 20120904
  2. DIMETAPP [Suspect]
     Indication: PYREXIA

REACTIONS (5)
  - Urticaria [Not Recovered/Not Resolved]
  - Blister [Not Recovered/Not Resolved]
  - Hypoaesthesia [Not Recovered/Not Resolved]
  - Paraesthesia [Not Recovered/Not Resolved]
  - Rash [Not Recovered/Not Resolved]
